FAERS Safety Report 6289252-3 (Version None)
Quarter: 2009Q3

REPORT INFORMATION
  Report Type: 
  Country: None (occurrence: None)
  Receive Date: 20090729
  Receipt Date: 20090715
  Transmission Date: 20100115
  Serious: Yes (Hospitalization, Other)
  Sender: FDA-Public Use
  Company Number: US-TYCO HEALTHCARE/MALLINCKRODT-T200801235

PATIENT

DRUGS (13)
  1. OPTIMARK [Suspect]
     Indication: NUCLEAR MAGNETIC RESONANCE IMAGING
     Dosage: UNK, SINGLE
     Dates: start: 20020924, end: 20020924
  2. MAGNEVIST [Suspect]
     Indication: NUCLEAR MAGNETIC RESONANCE IMAGING
     Dosage: UNK, SINGLE
     Dates: start: 20041014, end: 20041014
  3. LEVOXYL [Concomitant]
     Indication: HYPOTHYROIDISM
     Dosage: 0.025 MG (1 TABLET), QD
  4. COUMADIN [Concomitant]
     Indication: ANTICOAGULANT THERAPY
     Dosage: 2 MG, TAKE AS DIRECTED
     Dates: start: 20020401
  5. PROCRIT                            /00909301/ [Concomitant]
     Indication: ANAEMIA
     Dosage: 20000 U/ML 3X A WEEK
     Dates: start: 19940601
  6. RENAGEL                            /01459901/ [Concomitant]
     Indication: RENAL DISORDER
     Dosage: 4000 MG, TID (5 TABLETS WITH EACH MEAL)
     Dates: start: 19970101
  7. PREVACID [Concomitant]
     Indication: ANTACID THERAPY
     Dosage: 30 MG, QD (ONE CAPSULE DAILY)
     Dates: start: 19950101
  8. ANCEF                              /00288502/ [Concomitant]
     Dosage: 1 G, 1 VIAL TO PERITONEAL DIALYSIS TO DWELL FOR 8HRS DAILY X14 DAYS
  9. GENTAMYCIN-MP [Concomitant]
     Dosage: 40 MG/ML 2 ML VIAL 1 AND 1/4 ML DAILY X 14 DAYS
  10. ALLEGRA [Concomitant]
     Indication: HYPERSENSITIVITY
     Dosage: 120 MG, PRN (1 CAPSULE 2X PRN)
  11. STERAPRED DS [Concomitant]
     Dosage: 10 MG TABLET, TAKE AS DIRECTED
  12. CALCITROL                          /00508501/ [Concomitant]
     Dosage: 0.5 UG, QD
  13. POTASSIUM CHLORIDE [Concomitant]
     Dosage: 20 MEQ, QD (ONE TABLET DAILY)

REACTIONS (13)
  - BLOOD CHOLESTEROL INCREASED [None]
  - BLOODY PERITONEAL EFFLUENT [None]
  - CELLULITIS [None]
  - DIARRHOEA [None]
  - DYSPEPSIA [None]
  - DYSPHAGIA [None]
  - GASTROOESOPHAGEAL REFLUX DISEASE [None]
  - HEPATIC HAEMORRHAGE [None]
  - HYPERPARATHYROIDISM [None]
  - MYOCARDIAL INFARCTION [None]
  - NEPHROGENIC SYSTEMIC FIBROSIS [None]
  - PULMONARY OEDEMA [None]
  - VULVOVAGINAL CANDIDIASIS [None]
